FAERS Safety Report 18254394 (Version 1)
Quarter: 2020Q3

REPORT INFORMATION
  Report Type: Spontaneous
  Country: FR (occurrence: FR)
  Receive Date: 20200910
  Receipt Date: 20200910
  Transmission Date: 20201103
  Serious: Yes (Other)
  Sender: FDA-Public Use
  Company Number: FR-MYLANLABS-2020M1076702

PATIENT
  Age: 85 Year
  Sex: Female
  Weight: 60 kg

DRUGS (3)
  1. BUPIVACAINE MYLAN [Suspect]
     Active Substance: BUPIVACAINE
     Indication: LOCAL ANAESTHESIA
     Dosage: 9 MILLIGRAM, TOTAL
     Route: 037
     Dates: start: 20200729, end: 20200729
  2. MORPHINE [Concomitant]
     Active Substance: MORPHINE
     Dosage: 100 MICROGRAM, TOTAL
     Route: 037
  3. SUFENTA [Concomitant]
     Active Substance: SUFENTANIL CITRATE
     Dosage: 2.5 MICROGRAM, TOTAL
     Route: 037

REACTIONS (1)
  - Drug ineffective [Recovered/Resolved]

NARRATIVE: CASE EVENT DATE: 20200729
